FAERS Safety Report 6738121-0 (Version None)
Quarter: 2010Q2

REPORT INFORMATION
  Report Type: 
  Country: None (occurrence: None)
  Receive Date: 20100524
  Receipt Date: 20100513
  Transmission Date: 20101027
  Serious: Yes (Other)
  Sender: FDA-Public Use
  Company Number: CA-JNJFOC-20100111840

PATIENT
  Sex: Female
  Weight: 118.3 kg

DRUGS (6)
  1. REMICADE [Suspect]
     Indication: ANKYLOSING SPONDYLITIS
     Route: 042
     Dates: start: 20100322
  2. REMICADE [Suspect]
     Route: 042
     Dates: start: 20100322
  3. STEROIDS NOS [Suspect]
     Indication: DRUG USE FOR UNKNOWN INDICATION
  4. SYNTHROID [Concomitant]
  5. IBUPROFEN [Concomitant]
  6. PREDNISONE [Concomitant]

REACTIONS (2)
  - CATARACT [None]
  - MACULAR OEDEMA [None]
